FAERS Safety Report 5565530-8 (Version None)
Quarter: 2007Q4

REPORT INFORMATION
  Report Type: 
  Country: None (occurrence: None)
  Receive Date: 20071218
  Receipt Date: 20071206
  Transmission Date: 20080405
  Serious: Yes (Other)
  Sender: FDA-Public Use
  Company Number: GB-PFIZER INC-2007103471

PATIENT
  Age: 32 Year
  Sex: Female

DRUGS (5)
  1. TRANEXAMIC ACID (IV) [Suspect]
     Route: 048
     Dates: start: 20071116, end: 20071116
  2. FRISIUM [Concomitant]
     Dosage: DAILY DOSE:10MG-FREQ:DAILY
     Route: 048
  3. KEPPRA [Concomitant]
     Dosage: DAILY DOSE:1500MG-FREQ:DAILY
     Route: 048
  4. LYRICA [Concomitant]
     Dosage: DAILY DOSE:300MG
     Route: 048
  5. TEGRETOL [Concomitant]
     Dosage: DAILY DOSE:400MG-FREQ:DAILY
     Route: 054

REACTIONS (1)
  - EPILEPSY [None]
